FAERS Safety Report 14582527 (Version 1)
Quarter: 2018Q1

REPORT INFORMATION
  Report Type: Report from Study
  Country: US (occurrence: US)
  Receive Date: 20180228
  Receipt Date: 20180228
  Transmission Date: 20180509
  Serious: Yes (Other)
  Sender: FDA-Public Use
  Company Number: US-GILEAD-2018-0323300

PATIENT
  Age: 81 Year
  Sex: Male

DRUGS (1)
  1. RANOLAZINE. [Suspect]
     Active Substance: RANOLAZINE
     Indication: ANGINA PECTORIS
     Dosage: 500 MG, UNK
     Route: 048
     Dates: start: 20180101

REACTIONS (4)
  - Chest pain [Not Recovered/Not Resolved]
  - Product use issue [Not Recovered/Not Resolved]
  - Myocardial infarction [Unknown]
  - Stent placement [Unknown]
